FAERS Safety Report 11273601 (Version 1)
Quarter: 2015Q3

REPORT INFORMATION
  Report Type: Spontaneous
  Country: PL (occurrence: PL)
  Receive Date: 20150715
  Receipt Date: 20150715
  Transmission Date: 20151125
  Serious: Yes (Other)
  Sender: FDA-Public Use
  Company Number: PL-AMGEN-POLSP2015069410

PATIENT
  Age: 70 Year
  Sex: Female
  Weight: 90 kg

DRUGS (4)
  1. NEULASTA [Suspect]
     Active Substance: PEGFILGRASTIM
     Indication: LUNG NEOPLASM MALIGNANT
  2. ETOPOSIDE. [Concomitant]
     Active Substance: ETOPOSIDE
     Indication: LUNG NEOPLASM MALIGNANT
     Dosage: UNK
     Dates: start: 2015
  3. NEULASTA [Suspect]
     Active Substance: PEGFILGRASTIM
     Indication: PROPHYLAXIS
     Dosage: UNK
     Route: 058
     Dates: start: 2015, end: 20150710
  4. CISPLATIN. [Concomitant]
     Active Substance: CISPLATIN
     Indication: LUNG NEOPLASM MALIGNANT
     Dosage: UNK
     Dates: start: 2015

REACTIONS (3)
  - Loss of consciousness [Recovered/Resolved]
  - Micturition disorder [Unknown]
  - Epilepsy [Recovered/Resolved]

NARRATIVE: CASE EVENT DATE: 2015
